FAERS Safety Report 7437072-6 (Version None)
Quarter: 2011Q2

REPORT INFORMATION
  Report Type: 
  Country: None (occurrence: None)
  Receive Date: 20110426
  Receipt Date: 20110413
  Transmission Date: 20111010
  Serious: Yes (Other)
  Sender: FDA-Public Use
  Company Number: PHHY2011JP19668

PATIENT
  Age: 79 Year

DRUGS (5)
  1. GLEEVEC [Suspect]
     Dosage: 100 MG DAILY
     Route: 048
  2. GLEEVEC [Suspect]
     Dosage: 100 MG DAILY
     Route: 048
  3. GLEEVEC [Suspect]
     Dosage: 200 MG DAILY
     Route: 048
  4. GLEEVEC [Suspect]
     Indication: CHRONIC MYELOID LEUKAEMIA
     Dosage: 400 MG DAILY
     Route: 048
  5. DASATINIB [Concomitant]
     Dosage: 50 MG DAILY
     Dates: start: 20090601

REACTIONS (3)
  - LIVER DISORDER [None]
  - RASH [None]
  - NO THERAPEUTIC RESPONSE [None]
